FAERS Safety Report 9782116 (Version 1)
Quarter: 2013Q4

REPORT INFORMATION
  Report Type: Other
  Country: IT (occurrence: IT)
  Receive Date: 20131226
  Receipt Date: 20131226
  Transmission Date: 20140711
  Serious: Yes (Death, Other)
  Sender: FDA-Public Use
  Company Number: IT-BRISTOL-MYERS SQUIBB COMPANY-19924653

PATIENT
  Age: 63 Year
  Sex: Male

DRUGS (1)
  1. METFORMIN HCL [Suspect]

REACTIONS (2)
  - Toxicity to various agents [Fatal]
  - Renal failure acute [Unknown]
